APPROVED DRUG PRODUCT: ARFONAD
Active Ingredient: TRIMETHAPHAN CAMSYLATE
Strength: 50MG/ML
Dosage Form/Route: INJECTABLE;INJECTION
Application: N008983 | Product #001
Applicant: HOFFMANN LA ROCHE INC
Approved: Approved Prior to Jan 1, 1982 | RLD: No | RS: No | Type: DISCN